FAERS Safety Report 8851903 (Version 1)
Quarter: 2012Q4

REPORT INFORMATION
  Report Type: 
  Country: AR (occurrence: AR)
  Receive Date: 20121022
  Receipt Date: 20121022
  Transmission Date: 20130627
  Serious: Yes (Other)
  Sender: FDA-Public Use
  Company Number: PHHY2012AR093557

PATIENT
  Sex: Male

DRUGS (2)
  1. SINTROM [Suspect]
     Indication: BLOOD DISORDER
     Dosage: 0.25 DF, daily
  2. DIOVAN D [Suspect]
     Indication: BLOOD PRESSURE ABNORMAL
     Dosage: 1 DF, daily
     Dates: start: 2010

REACTIONS (2)
  - Diabetes mellitus [Not Recovered/Not Resolved]
  - Wrong technique in drug usage process [Unknown]
